FAERS Safety Report 9108232 (Version 1)
Quarter: 2013Q1

REPORT INFORMATION
  Report Type: Spontaneous
  Country: TW (occurrence: TW)
  Receive Date: 20130222
  Receipt Date: 20130222
  Transmission Date: 20140127
  Serious: Yes (Death)
  Sender: FDA-Public Use
  Company Number: TW-BAYER-2013-021126

PATIENT
  Age: 72 Year
  Sex: Female
  Weight: 50 kg

DRUGS (1)
  1. AVELOX [Suspect]
     Indication: PNEUMONIA
     Dosage: 400 MG, QD
     Route: 041
     Dates: start: 20130202, end: 20130205

REACTIONS (2)
  - Ventricular arrhythmia [Fatal]
  - Electrocardiogram QT prolonged [Fatal]
